FAERS Safety Report 7671390-1 (Version None)
Quarter: 2011Q3

REPORT INFORMATION
  Report Type: 
  Country: None (occurrence: None)
  Receive Date: 20110809
  Receipt Date: 20110805
  Transmission Date: 20111222
  Serious: Yes (Death)
  Sender: FDA-Public Use
  Company Number: IT-PFIZER INC-2011180786

PATIENT
  Age: 42 Year
  Sex: Male

DRUGS (4)
  1. CEFTRIAXONE [Suspect]
     Dosage: 2 G TOTAL
     Route: 042
     Dates: start: 20110728, end: 20110728
  2. PIPERACILLIN AND TAZOBACTAM [Suspect]
     Dosage: 18 G TOTAL
     Route: 042
     Dates: start: 20110728, end: 20110728
  3. VISIPAQUE [Suspect]
     Dosage: UNK
     Dates: start: 20110728, end: 20110728
  4. ACETAMINOPHEN [Concomitant]

REACTIONS (1)
  - ANAPHYLACTIC SHOCK [None]
